FAERS Safety Report 21249369 (Version 1)
Quarter: 2022Q3

REPORT INFORMATION
  Report Type: Spontaneous
  Country: US (occurrence: None)
  Receive Date: 20220824
  Receipt Date: 20220824
  Transmission Date: 20221027
  Serious: No
  Sender: FDA-Public Use
  Company Number: None

PATIENT
  Sex: Female
  Weight: 64.41 kg

DRUGS (1)
  1. FLUOROURACIL CREAM [Suspect]
     Active Substance: FLUOROURACIL
     Indication: Precancerous condition
     Dates: end: 20220620

REACTIONS (4)
  - Application site pain [None]
  - Application site pain [None]
  - Insomnia [None]
  - Skin exfoliation [None]
